FAERS Safety Report 25670797 (Version 1)
Quarter: 2025Q3

REPORT INFORMATION
  Report Type: Spontaneous
  Country: TW (occurrence: TW)
  Receive Date: 20250812
  Receipt Date: 20250812
  Transmission Date: 20251020
  Serious: Yes (Other)
  Sender: PFIZER
  Company Number: TW-PFIZER INC-202500160065

PATIENT
  Age: 85 Year
  Sex: Male

DRUGS (1)
  1. LOPID [Suspect]
     Active Substance: GEMFIBROZIL

REACTIONS (2)
  - Renal disorder [Unknown]
  - Muscular weakness [Unknown]
